FAERS Safety Report 14876507 (Version 1)
Quarter: 2018Q2

REPORT INFORMATION
  Report Type: Spontaneous
  Country: US (occurrence: US)
  Receive Date: 20180510
  Receipt Date: 20180510
  Transmission Date: 20180711
  Serious: Yes (Hospitalization, Other)
  Sender: FDA-Public Use
  Company Number: US-PFIZER INC-2018188160

PATIENT
  Age: 69 Year
  Sex: Male

DRUGS (1)
  1. TIKOSYN [Suspect]
     Active Substance: DOFETILIDE
     Indication: ATRIAL FIBRILLATION
     Dosage: 5 UG, 2X/DAY
     Route: 048
     Dates: start: 2012, end: 201802

REACTIONS (8)
  - Ventricular tachycardia [Unknown]
  - Cardiac disorder [Unknown]
  - Sinus node dysfunction [Recovered/Resolved]
  - Drug effect incomplete [Unknown]
  - Influenza [Recovered/Resolved]
  - Electrocardiogram QRS complex prolonged [Unknown]
  - Ileus [Recovered/Resolved]
  - Pneumonia [Recovered/Resolved]

NARRATIVE: CASE EVENT DATE: 20180204
